FAERS Safety Report 18329920 (Version 3)
Quarter: 2020Q4

REPORT INFORMATION
  Report Type: Spontaneous
  Country: IN (occurrence: IN)
  Receive Date: 20200930
  Receipt Date: 20201021
  Transmission Date: 20210113
  Serious: Yes (Other)
  Sender: FDA-Public Use
  Company Number: IN-PFIZER INC-2020374658

PATIENT
  Age: 46 Year
  Sex: Female
  Weight: 70 kg

DRUGS (4)
  1. CARBOPLATIN. [Suspect]
     Active Substance: CARBOPLATIN
     Dosage: 600 MG
     Dates: start: 20200825, end: 20200914
  2. MITOTAX [Suspect]
     Active Substance: PACLITAXEL
     Dosage: 300 MG
     Dates: start: 20200825, end: 2020
  3. CARBOPLATIN. [Suspect]
     Active Substance: CARBOPLATIN
     Dosage: 600 MG
     Dates: start: 20200825, end: 20200914
  4. BEVATAS [Suspect]
     Active Substance: BEVACIZUMAB
     Dosage: 600 MG
     Dates: start: 20200825, end: 2020

REACTIONS (12)
  - Chest discomfort [Recovered/Resolved]
  - Red blood cell sedimentation rate increased [Unknown]
  - Infection [Unknown]
  - Cardiac arrest [Recovered/Resolved]
  - Rash [Recovered/Resolved]
  - Haematocrit decreased [Unknown]
  - Erythema [Recovered/Resolved]
  - Haemoglobin decreased [Unknown]
  - Pruritus [Recovered/Resolved]
  - Blood pressure decreased [Unknown]
  - Dyspnoea [Recovered/Resolved]
  - Lymphocyte count increased [Unknown]

NARRATIVE: CASE EVENT DATE: 20200912
